FAERS Safety Report 4773764-5 (Version None)
Quarter: 2005Q3

REPORT INFORMATION
  Report Type: 
  Country: None (occurrence: None)
  Receive Date: 20050920
  Receipt Date: 20050610
  Transmission Date: 20060218
  Serious: Yes (Hospitalization)
  Sender: FDA-Public Use
  Company Number: US-MERCK-0506USA01860

PATIENT
  Age: 58 Year
  Sex: Male
  Weight: 94 kg

DRUGS (13)
  1. VIOXX [Suspect]
     Indication: OSTEOARTHRITIS
     Route: 048
     Dates: start: 19991125, end: 20040930
  2. VIOXX [Suspect]
     Indication: BACK PAIN
     Route: 048
     Dates: start: 19991125, end: 20040930
  3. ZESTRIL [Concomitant]
     Route: 065
     Dates: start: 19900101
  4. PLAVIX [Concomitant]
     Route: 065
     Dates: start: 19900101
  5. TENORMIN [Concomitant]
     Route: 065
     Dates: start: 19900101
  6. LIPITOR [Concomitant]
     Route: 065
     Dates: start: 19900101
  7. FOSAMAX [Concomitant]
     Route: 048
  8. FOLIC ACID [Concomitant]
     Route: 065
  9. ZYRTEC [Concomitant]
     Route: 065
  10. ASPIRIN [Concomitant]
     Route: 065
     Dates: start: 19900101
  11. ZOCOR [Concomitant]
     Route: 065
     Dates: start: 19900101
  12. INDERAL [Concomitant]
     Route: 065
     Dates: start: 19900101
  13. LOPRESSOR [Concomitant]
     Route: 065
     Dates: start: 19900101

REACTIONS (10)
  - AORTIC ATHEROSCLEROSIS [None]
  - ATRIAL FIBRILLATION [None]
  - CORONARY ARTERY DISEASE [None]
  - CORONARY ARTERY STENOSIS [None]
  - DEPRESSION [None]
  - GASTROINTESTINAL DISORDER [None]
  - MITRAL VALVE INCOMPETENCE [None]
  - MYOCARDIAL INFARCTION [None]
  - SUPRAVENTRICULAR TACHYCARDIA [None]
  - VENTRICULAR DYSFUNCTION [None]
